FAERS Safety Report 5892379-9 (Version None)
Quarter: 2008Q3

REPORT INFORMATION
  Report Type: 
  Country: None (occurrence: None)
  Receive Date: 20080918
  Receipt Date: 20080918
  Transmission Date: 20090109
  Serious: Yes (Other)
  Sender: FDA-Public Use
  Company Number: None

PATIENT
  Sex: Female
  Weight: 82.1011 kg

DRUGS (1)
  1. GABAPENTIN [Suspect]
     Indication: TRAUMATIC BRAIN INJURY
     Dosage: 3600 MG. DAILY PO
     Route: 048
     Dates: start: 20050501, end: 20060901

REACTIONS (5)
  - ASTHENIA [None]
  - DRUG INEFFECTIVE [None]
  - MOOD SWINGS [None]
  - MOTOR DYSFUNCTION [None]
  - THERAPEUTIC RESPONSE UNEXPECTED WITH DRUG SUBSTITUTION [None]
